FAERS Safety Report 24178187 (Version 1)
Quarter: 2024Q3

REPORT INFORMATION
  Report Type: Spontaneous
  Country: FR (occurrence: FR)
  Receive Date: 20240806
  Receipt Date: 20240806
  Transmission Date: 20241017
  Serious: Yes (Other)
  Sender: AUROBINDO
  Company Number: FR-AFSSAPS-AVMP2024000215

PATIENT
  Age: 35 Year
  Sex: Male

DRUGS (3)
  1. PREGABALIN [Suspect]
     Active Substance: PREGABALIN
     Indication: Product used for unknown indication
     Dosage: UNK
     Route: 065
     Dates: start: 2008, end: 2024
  2. PREGABALIN [Suspect]
     Active Substance: PREGABALIN
     Dosage: 1500 MILLIGRAM, ONCE A DAY (300 MG, 5 TIMES/DAY)
     Route: 048
     Dates: start: 2024, end: 20240718
  3. SKENAN [Suspect]
     Active Substance: MORPHINE SULFATE
     Indication: Product used for unknown indication
     Dosage: 600 MILLIGRAM, ONCE A DAY (200 MG, 3 TIMES/DAY)
     Route: 042
     Dates: start: 20240612, end: 20240718

REACTIONS (1)
  - Drug use disorder [Recovering/Resolving]

NARRATIVE: CASE EVENT DATE: 20240101
